FAERS Safety Report 24002776 (Version 1)
Quarter: 2024Q2

REPORT INFORMATION
  Report Type: Report from Study
  Country: SV (occurrence: SV)
  Receive Date: 20240624
  Receipt Date: 20240624
  Transmission Date: 20240716
  Serious: Yes (Other)
  Sender: FDA-Public Use
  Company Number: SV-Merck Healthcare KGaA-2024032941

PATIENT
  Sex: Male

DRUGS (1)
  1. SAIZEN [Suspect]
     Active Substance: SOMATROPIN
     Indication: Growth hormone deficiency
     Route: 058
     Dates: start: 20240523

REACTIONS (4)
  - Suicidal ideation [Unknown]
  - Stress [Unknown]
  - Mental disorder [Unknown]
  - Attention deficit hyperactivity disorder [Unknown]
